FAERS Safety Report 11398893 (Version 1)
Quarter: 2015Q3

REPORT INFORMATION
  Report Type: Spontaneous
  Country: FR (occurrence: FR)
  Receive Date: 20150820
  Receipt Date: 20150820
  Transmission Date: 20151125
  Serious: Yes (Other)
  Sender: FDA-Public Use
  Company Number: FR-JNJFOC-20150813245

PATIENT

DRUGS (1)
  1. REMICADE [Suspect]
     Active Substance: INFLIXIMAB
     Indication: BEHCET^S SYNDROME
     Dosage: WEEK 0, 2, 6 AND THEN EVERY 4-6 WEEKS
     Route: 042

REACTIONS (2)
  - Product use issue [Unknown]
  - Hodgkin^s disease [Unknown]
